FAERS Safety Report 4498519-0 (Version None)
Quarter: 2004Q4

REPORT INFORMATION
  Report Type: 
  Country: None (occurrence: None)
  Receive Date: 20041105
  Receipt Date: 20041025
  Transmission Date: 20050328
  Serious: Yes (Hospitalization)
  Sender: FDA-Public Use
  Company Number: 140581USA

PATIENT
  Age: 78 Year
  Sex: Male

DRUGS (4)
  1. ADRUCIL [Suspect]
     Indication: COLORECTAL CANCER METASTATIC
     Dates: start: 20040913
  2. CETUXIMAB [Suspect]
     Dates: start: 20040913, end: 20040913
  3. OXALIPLATIN [Suspect]
     Indication: COLORECTAL CANCER METASTATIC
  4. LEUCOVORIN [Suspect]
     Indication: COLORECTAL CANCER METASTATIC

REACTIONS (8)
  - CHILLS [None]
  - DEHYDRATION [None]
  - DIARRHOEA [None]
  - INFECTION [None]
  - RASH GENERALISED [None]
  - RENAL FAILURE [None]
  - RESPIRATORY FAILURE [None]
  - SUPERINFECTION [None]
